FAERS Safety Report 22007679 (Version 20)
Quarter: 2024Q4

REPORT INFORMATION
  Report Type: Spontaneous
  Country: CA (occurrence: CA)
  Receive Date: 20230218
  Receipt Date: 20241227
  Transmission Date: 20250114
  Serious: Yes (Hospitalization, Other)
  Sender: CELLTRION
  Company Number: CA-CELLTRION INC.-2022CA016593

PATIENT

DRUGS (30)
  1. INFLECTRA [Suspect]
     Active Substance: INFLIXIMAB-DYYB
     Indication: Crohn^s disease
     Dosage: 5 MG/KG, WEEKS 0,2, 6, THEN EVERY 8 WEEKS
     Route: 042
     Dates: start: 20220928
  2. INFLECTRA [Suspect]
     Active Substance: INFLIXIMAB-DYYB
     Dosage: 5 MG/KG, WEEKS 0,2, 6, THEN Q8WEEKS
     Route: 042
     Dates: start: 20221011
  3. INFLECTRA [Suspect]
     Active Substance: INFLIXIMAB-DYYB
     Dosage: 5 MG/KG, WEEKS 0,2, 6, THEN Q8WEEKS
     Route: 042
     Dates: start: 20221108
  4. INFLECTRA [Suspect]
     Active Substance: INFLIXIMAB-DYYB
     Dosage: 5 MG/KG EVERY 8 WEEKS (PRESCRIBED 5 MG/KG WEEKS 0,2, 6, THEN Q8WEEKS)
     Route: 042
     Dates: start: 20230103, end: 20230103
  5. INFLECTRA [Suspect]
     Active Substance: INFLIXIMAB-DYYB
     Dosage: 5 MG/KG AFTER 5 WEEKS, PRESCRIBED EVERY 8 WEEKS, STAT DOSE
     Route: 042
     Dates: start: 20230209, end: 20230209
  6. INFLECTRA [Suspect]
     Active Substance: INFLIXIMAB-DYYB
     Dosage: 420 MG (5 MG/KG), EVERY 4 WEEKS
     Route: 042
     Dates: start: 20230309
  7. INFLECTRA [Suspect]
     Active Substance: INFLIXIMAB-DYYB
     Dosage: 420 MG (5 MG/KG), EVERY 4 WEEKS
     Route: 042
     Dates: start: 20230404
  8. INFLECTRA [Suspect]
     Active Substance: INFLIXIMAB-DYYB
     Dosage: 425 MG, EVERY 4 WEEKS
     Route: 042
     Dates: start: 20230502
  9. INFLECTRA [Suspect]
     Active Substance: INFLIXIMAB-DYYB
     Dosage: 427 MG, EVERY 4 WEEKS
     Route: 042
     Dates: start: 20230530
  10. INFLECTRA [Suspect]
     Active Substance: INFLIXIMAB-DYYB
     Dosage: 427 MG, EVERY 4 WEEKS
     Route: 042
     Dates: start: 20230530
  11. INFLECTRA [Suspect]
     Active Substance: INFLIXIMAB-DYYB
     Dosage: 430 MG (SUPPOSED TO RECEIVE 10 MG/KG), 3 DAYS AFTER LAST INFUSION (5MG/KG, EVERY 4 WKS)
     Route: 042
     Dates: start: 20230602
  12. INFLECTRA [Suspect]
     Active Substance: INFLIXIMAB-DYYB
     Dosage: 430 MG (SUPPOSED TO RECEIVE 10 MG/KG), 3 DAYS AFTER LAST INFUSION (5 MG/KG, EVERY 4 WKS)
     Route: 042
     Dates: start: 20230602
  13. INFLECTRA [Suspect]
     Active Substance: INFLIXIMAB-DYYB
     Dosage: 430 MG (SUPPOSED TO RECEIVE 10 MG/KG), 3 DAYS AFTER LAST INFUSION (5 MG/KG, EVERY 4 WKS)
     Route: 042
     Dates: start: 20230602
  14. INFLECTRA [Suspect]
     Active Substance: INFLIXIMAB-DYYB
     Dosage: 430 MG (SUPPOSED TO RECEIVE 10 MG/KG), 3 DAYS AFTER LAST INFUSION (5 MG/KG, EVERY 4 WKS)
     Route: 042
     Dates: start: 20230602
  15. INFLECTRA [Suspect]
     Active Substance: INFLIXIMAB-DYYB
     Dosage: 845 MG (10 MG/KG), EVERY 4 WEEKS
     Route: 042
     Dates: start: 20230629, end: 20230629
  16. INFLECTRA [Suspect]
     Active Substance: INFLIXIMAB-DYYB
     Dosage: 10 MG/KG EVERY 4 WEEKS
     Route: 042
     Dates: start: 20230727
  17. INFLECTRA [Suspect]
     Active Substance: INFLIXIMAB-DYYB
     Dosage: 860 MG (10 MG/KG) AFTER 6 WEEKS AND 1 DAY, PRESCRIBED EVERY 4 WEEKS
     Route: 042
     Dates: start: 20230908
  18. INFLECTRA [Suspect]
     Active Substance: INFLIXIMAB-DYYB
     Dosage: 860 MG (10 MG/KG), EVERY 4 WEEKS
     Route: 042
     Dates: start: 20240328
  19. INFLECTRA [Suspect]
     Active Substance: INFLIXIMAB-DYYB
     Dosage: 10 MG/KG, EVERY 6 WEEKS (890 MG, 4 WEEKS)
     Route: 042
     Dates: start: 20240426
  20. INFLECTRA [Suspect]
     Active Substance: INFLIXIMAB-DYYB
     Dosage: 10 MG/KG, EVERY 6 WEEKS
     Route: 042
     Dates: start: 20240830
  21. INFLECTRA [Suspect]
     Active Substance: INFLIXIMAB-DYYB
     Dosage: 885 MG  AFTER 8 WEEKS (PRESCRIBED 10 MG/KG, EVERY 6 WEEKS)
     Route: 042
     Dates: start: 20241025
  22. INFLECTRA [Suspect]
     Active Substance: INFLIXIMAB-DYYB
     Dosage: 10 MG/KG,EVERY 6 WEEK
     Route: 042
     Dates: start: 20241203
  23. CANDESARTAN [Concomitant]
     Active Substance: CANDESARTAN
     Dosage: 1 DF
  24. DICYCLOMINE [Concomitant]
     Active Substance: DICYCLOMINE HYDROCHLORIDE
     Dosage: 1 DF
  25. ENTOCORT [Concomitant]
     Active Substance: BUDESONIDE
     Dosage: 1 DF
  26. MESALAMINE [Concomitant]
     Active Substance: MESALAMINE
     Dosage: 1 DF
  27. ROSUVASTATIN [Concomitant]
     Active Substance: ROSUVASTATIN
     Dosage: 1 DF
  28. SYNTHROID [Concomitant]
     Active Substance: LEVOTHYROXINE SODIUM
     Dosage: 1 DF
  29. MESALAMINE [Concomitant]
     Active Substance: MESALAMINE
     Dosage: 1 DF
     Dates: start: 20230622
  30. CHOLECALCIFEROL [Concomitant]
     Active Substance: CHOLECALCIFEROL
     Dosage: 1 DF

REACTIONS (23)
  - Diverticulitis [Recovering/Resolving]
  - Cellulitis orbital [Recovered/Resolved]
  - Condition aggravated [Not Recovered/Not Resolved]
  - Drug ineffective [Unknown]
  - Migraine [Recovering/Resolving]
  - Disease recurrence [Recovering/Resolving]
  - Head discomfort [Recovering/Resolving]
  - Gingival bleeding [Not Recovered/Not Resolved]
  - Fatigue [Recovered/Resolved]
  - Hypoaesthesia [Recovering/Resolving]
  - Gingival swelling [Not Recovered/Not Resolved]
  - Oral mucosal erythema [Not Recovered/Not Resolved]
  - Skin lesion [Not Recovered/Not Resolved]
  - Oral pain [Not Recovered/Not Resolved]
  - Gingival abscess [Not Recovered/Not Resolved]
  - Oral herpes [Not Recovered/Not Resolved]
  - Aphthous ulcer [Not Recovered/Not Resolved]
  - Off label use [Unknown]
  - Off label use [Unknown]
  - Intentional product use issue [Unknown]
  - Incorrect dose administered [Unknown]
  - Inappropriate schedule of product administration [Unknown]
  - Incorrect product administration duration [Unknown]

NARRATIVE: CASE EVENT DATE: 20220101
